FAERS Safety Report 17172275 (Version 7)
Quarter: 2020Q3

REPORT INFORMATION
  Report Type: Spontaneous
  Country: US (occurrence: US)
  Receive Date: 20191218
  Receipt Date: 20200810
  Transmission Date: 20201102
  Serious: Yes (Other)
  Sender: FDA-Public Use
  Company Number: NVSC2019US015343

PATIENT
  Age: 38 Year
  Sex: Female

DRUGS (1)
  1. ZOFRAN [Suspect]
     Active Substance: ONDANSETRON HYDROCHLORIDE
     Indication: HYPEREMESIS GRAVIDARUM
     Dosage: 8 MG, UNKNOWN
     Route: 048
     Dates: start: 20041210, end: 200504

REACTIONS (10)
  - Premature delivery [Unknown]
  - Maternal exposure during pregnancy [Unknown]
  - Injury [Unknown]
  - Anxiety [Unknown]
  - Foetal death [Unknown]
  - Depression [Unknown]
  - Pre-eclampsia [Unknown]
  - Product use in unapproved indication [Unknown]
  - Haemorrhage in pregnancy [Unknown]
  - Mitral valve prolapse [Unknown]

NARRATIVE: CASE EVENT DATE: 20050420
